FAERS Safety Report 7930155-3 (Version None)
Quarter: 2011Q4

REPORT INFORMATION
  Report Type: 
  Country: None (occurrence: None)
  Receive Date: 20111117
  Receipt Date: 20110221
  Transmission Date: 20120403
  Serious: Yes (Other)
  Sender: FDA-Public Use
  Company Number: CC11-0325

PATIENT

DRUGS (1)
  1. ATRIDOX [Suspect]

REACTIONS (1)
  - NONSPECIFIC REACTION [None]
